FAERS Safety Report 7506313-9 (Version None)
Quarter: 2011Q2

REPORT INFORMATION
  Report Type: 
  Country: None (occurrence: None)
  Receive Date: 20110526
  Receipt Date: 20101118
  Transmission Date: 20111010
  Serious: No
  Sender: FDA-Public Use
  Company Number: US-ABBOTT-10P-163-0686907-00

PATIENT
  Age: 54 Year

DRUGS (5)
  1. ZEMPLAR [Suspect]
     Indication: HYPERPARATHYROIDISM
     Dates: start: 20100601, end: 20100726
  2. COZAAR [Concomitant]
     Indication: HYPERTENSION
  3. LOTENSIN [Concomitant]
     Indication: HYPERTENSION
  4. VIAGRA [Concomitant]
     Indication: ERECTILE DYSFUNCTION
  5. PREVACID [Concomitant]
     Indication: GASTROOESOPHAGEAL REFLUX DISEASE

REACTIONS (1)
  - RESTLESS LEGS SYNDROME [None]
